FAERS Safety Report 7627910-6 (Version None)
Quarter: 2011Q3

REPORT INFORMATION
  Report Type: 
  Country: None (occurrence: None)
  Receive Date: 20110721
  Receipt Date: 20081127
  Transmission Date: 20111222
  Serious: Yes (Hospitalization)
  Sender: FDA-Public Use
  Company Number: DE-GENENTECH-321674

PATIENT
  Age: 78 Year
  Sex: Female

DRUGS (1)
  1. LUCENTIS [Suspect]
     Indication: MACULAR DEGENERATION
     Dosage: UNK
     Route: 031
     Dates: start: 20080505

REACTIONS (6)
  - VISUAL ACUITY REDUCED [None]
  - PNEUMONIA [None]
  - EYE SWELLING [None]
  - EYE HAEMORRHAGE [None]
  - VISION BLURRED [None]
  - COLOUR BLINDNESS ACQUIRED [None]
